FAERS Safety Report 22291077 (Version 1)
Quarter: 2023Q2

REPORT INFORMATION
  Report Type: Report from Study
  Country: GB (occurrence: GB)
  Receive Date: 20230506
  Receipt Date: 20230506
  Transmission Date: 20230721
  Serious: Yes (Other)
  Sender: FDA-Public Use
  Company Number: GB-002147023-NVSC2022GB177219

PATIENT
  Age: 34 Year
  Sex: Female

DRUGS (3)
  1. KESIMPTA [Suspect]
     Active Substance: OFATUMUMAB
     Indication: Multiple sclerosis
     Dosage: 20 MG, QW (ONE A WEEK FOR FIRST MONTH(NOT WEEK 3) THEN MONTHLY)
     Route: 058
     Dates: start: 20220727
  2. KESIMPTA [Suspect]
     Active Substance: OFATUMUMAB
     Dosage: UNK (SECOND INJECTION)
     Route: 058
  3. KESIMPTA [Suspect]
     Active Substance: OFATUMUMAB
     Dosage: UNK (THIRD INJECTION)
     Route: 058

REACTIONS (8)
  - Cellulitis [Not Recovered/Not Resolved]
  - Pain [Unknown]
  - Urinary tract infection [Unknown]
  - Pyrexia [Unknown]
  - Headache [Unknown]
  - Chest discomfort [Unknown]
  - Fatigue [Unknown]
  - Product supply issue [Unknown]
